FAERS Safety Report 9060970 (Version 3)
Quarter: 2013Q2

REPORT INFORMATION
  Report Type: Spontaneous
  Country: US (occurrence: US)
  Receive Date: 20130213
  Receipt Date: 20130410
  Transmission Date: 20140414
  Serious: No
  Sender: FDA-Public Use
  Company Number: US-009507513-1302USA000606

PATIENT
  Age: 37 Year
  Sex: Male
  Weight: 88.44 kg

DRUGS (7)
  1. PEG-INTRON [Suspect]
     Dosage: 0.5ML (150MCG), QW
     Route: 058
     Dates: start: 20130201
  2. REBETOL [Suspect]
     Dosage: UNK
     Route: 048
     Dates: start: 20130201
  3. PEGASYS [Suspect]
     Dosage: UNK
     Dates: start: 20130201
  4. WELLBUTRIN XL [Concomitant]
     Route: 048
  5. ACETAMINOPHEN [Concomitant]
  6. VICTRELIS [Suspect]
     Dosage: 800 MG, TID
     Route: 048
     Dates: start: 20130301
  7. WELLBUTRIN [Concomitant]
     Route: 048

REACTIONS (15)
  - Pain [Unknown]
  - Influenza like illness [Unknown]
  - Abdominal discomfort [Unknown]
  - Headache [Not Recovered/Not Resolved]
  - Pyrexia [Unknown]
  - Chills [Unknown]
  - Nausea [Not Recovered/Not Resolved]
  - Diarrhoea [Unknown]
  - Injection site erythema [Unknown]
  - Syringe issue [Unknown]
  - Retching [Not Recovered/Not Resolved]
  - Fatigue [Not Recovered/Not Resolved]
  - Vomiting [Unknown]
  - Mood altered [Unknown]
  - Feeling abnormal [Unknown]
